FAERS Safety Report 20163973 (Version 1)
Quarter: 2021Q4

REPORT INFORMATION
  Report Type: Report from Study
  Country: TR (occurrence: TR)
  Receive Date: 20211209
  Receipt Date: 20211209
  Transmission Date: 20220303
  Serious: Yes (Hospitalization, Other)
  Sender: FDA-Public Use
  Company Number: TR-ALS-000461

PATIENT
  Age: 24 Year
  Sex: Female

DRUGS (1)
  1. METFORMIN [Suspect]
     Active Substance: METFORMIN HYDROCHLORIDE
     Indication: Product used for unknown indication
     Dosage: INGESTION OF 100 METFORMIN TABLETS (1000 MG METFORMIN IN ONE TABLET)
     Route: 048

REACTIONS (11)
  - Suicide attempt [Unknown]
  - Intentional product misuse [Unknown]
  - Lactic acidosis [Recovered/Resolved]
  - Loss of consciousness [Recovered/Resolved]
  - Endotracheal intubation [Unknown]
  - Intentional overdose [Recovered/Resolved]
  - Catheter placement [Unknown]
  - Extubation [Unknown]
  - Continuous haemodiafiltration [Unknown]
  - Blood creatinine increased [Recovered/Resolved]
  - Mechanical ventilation [Unknown]
